FAERS Safety Report 19027057 (Version 1)
Quarter: 2021Q1

REPORT INFORMATION
  Report Type: Spontaneous
  Country: US (occurrence: US)
  Receive Date: 20210318
  Receipt Date: 20210318
  Transmission Date: 20210420
  Serious: Yes (Other)
  Sender: FDA-Public Use
  Company Number: US-FRESENIUS KABI-FK202102596

PATIENT
  Age: 6 Year
  Sex: Female

DRUGS (8)
  1. DOXORUBICIN (MANUFACTURER UNKNOWN) [Suspect]
     Active Substance: DOXORUBICIN
     Dosage: ALONG WITH VINCRISTINE AND DACTINOMYCIN
     Route: 065
  2. VINCRISTINE [Suspect]
     Active Substance: VINCRISTINE
     Dosage: ALONG WITH DOXORUBICIN AND DACTINOMYCIN
     Route: 065
  3. DACTINOMYCIN [Suspect]
     Active Substance: DACTINOMYCIN
     Dosage: ALONG WITH VINCRISTINE AND DOXORUBICIN
     Route: 065
  4. CYCLOPHOSPHAMIDE. [Suspect]
     Active Substance: CYCLOPHOSPHAMIDE
     Indication: NEPHROBLASTOMA
     Dosage: UPSTAGING CHEMOTHERAPY TO REGIMEN M (DACTINOMYCIN, CYCLOPHOSPHAMIDE, ETOPOSIDE, DOXORUBICIN, VINCRIS
     Route: 065
  5. DOXORUBICIN (MANUFACTURER UNKNOWN) [Suspect]
     Active Substance: DOXORUBICIN
     Indication: NEPHROBLASTOMA
     Dosage: UPSTAGING CHEMOTHERAPY TO REGIMEN M (DACTINOMYCIN, CYCLOPHOSPHAMIDE, ETOPOSIDE, DOXORUBICIN, VINCRIS
     Route: 065
  6. DACTINOMYCIN [Suspect]
     Active Substance: DACTINOMYCIN
     Indication: NEPHROBLASTOMA
     Dosage: UPSTAGING CHEMOTHERAPY TO REGIMEN M (DACTINOMYCIN, CYCLOPHOSPHAMIDE, ETOPOSIDE, DOXORUBICIN, VINCRIS
     Route: 065
  7. ETOPOSIDE (MANUFACTURER UNKNOWN) [Suspect]
     Active Substance: ETOPOSIDE
     Indication: NEPHROBLASTOMA
     Dosage: UPSTAGING CHEMOTHERAPY TO REGIMEN M (DACTINOMYCIN, CYCLOPHOSPHAMIDE, ETOPOSIDE, DOXORUBICIN, VINCRIS
     Route: 065
  8. VINCRISTINE [Suspect]
     Active Substance: VINCRISTINE
     Indication: NEPHROBLASTOMA
     Dosage: UPSTAGING CHEMOTHERAPY TO REGIMEN M (DACTINOMYCIN, CYCLOPHOSPHAMIDE, ETOPOSIDE, DOXORUBICIN, VINCRIS
     Route: 065

REACTIONS (1)
  - Atypical haemolytic uraemic syndrome [Recovering/Resolving]
